FAERS Safety Report 4442156-0 (Version None)
Quarter: 2004Q3

REPORT INFORMATION
  Report Type: 
  Country: None (occurrence: None)
  Receive Date: 20040903
  Receipt Date: 20040722
  Transmission Date: 20050211
  Serious: Yes (Other)
  Sender: FDA-Public Use
  Company Number: 2004UW15451

PATIENT
  Age: 78 Year
  Sex: Female
  Weight: 106.5953 kg

DRUGS (13)
  1. CRESTOR [Suspect]
     Indication: HYPERCHOLESTEROLAEMIA
     Dosage: 10 MG PO
     Route: 048
     Dates: start: 20040201
  2. ISOSORBIDE [Concomitant]
  3. FUROSEMIDE [Concomitant]
  4. PRILOSEC [Concomitant]
  5. MICRO-K [Concomitant]
  6. UNIVASC [Concomitant]
  7. SINGULAIR [Concomitant]
  8. DETROL [Concomitant]
  9. ULTRAM [Concomitant]
  10. LEXAPRO [Concomitant]
  11. VITAMIN E [Concomitant]
  12. OSCAL [Concomitant]
  13. MULTIVITAMIN [Concomitant]

REACTIONS (3)
  - ARTHRALGIA [None]
  - MUSCLE CRAMP [None]
  - SPINAL CORD COMPRESSION [None]
